FAERS Safety Report 19423099 (Version 3)
Quarter: 2021Q3

REPORT INFORMATION
  Report Type: Spontaneous
  Country: IT (occurrence: IT)
  Receive Date: 20210616
  Receipt Date: 20210923
  Transmission Date: 20211014
  Serious: Yes (Death, Life-Threatening, Hospitalization, Other)
  Sender: FDA-Public Use
  Company Number: IT-BRISTOL-MYERS SQUIBB COMPANY-BMS-2021-057073

PATIENT
  Age: 53 Year
  Sex: Male

DRUGS (2)
  1. YERVOY [Suspect]
     Active Substance: IPILIMUMAB
     Indication: METASTATIC MALIGNANT MELANOMA
     Dosage: 3 MILLIGRAM/KILOGRAM
     Route: 042
     Dates: start: 20210416, end: 20210416
  2. OPDIVO [Suspect]
     Active Substance: NIVOLUMAB
     Indication: METASTATIC MALIGNANT MELANOMA
     Dosage: UNK
     Route: 065
     Dates: start: 201903

REACTIONS (3)
  - Disease recurrence [Unknown]
  - COVID-19 [Fatal]
  - Pneumonia [Fatal]

NARRATIVE: CASE EVENT DATE: 20210517
